FAERS Safety Report 8886430 (Version 2)
Quarter: 2012Q4

REPORT INFORMATION
  Report Type: 
  Country: JP (occurrence: JP)
  Receive Date: 20121105
  Receipt Date: 20121115
  Transmission Date: 20130627
  Serious: Yes (Other)
  Sender: FDA-Public Use
  Company Number: JP-B.I. PHARMACEUTICALS,INC./RIDGEFIELD-2012-BP-27124NB

PATIENT
  Age: 69 Year
  Sex: Male

DRUGS (5)
  1. PERSANTIN [Suspect]
     Indication: CARDIAC FAILURE CONGESTIVE
     Dosage: 75 mg
     Route: 048
  2. LANIRAPID [Concomitant]
     Indication: ANGINA PECTORIS
     Dosage: 0.15 mg
     Route: 048
  3. URSO [Concomitant]
     Indication: CHRONIC HEPATITIS C
     Dosage: 150 mg
     Route: 048
  4. SERMION [Concomitant]
     Dosage: 15 mg
     Route: 048
  5. ZYLORIC [Concomitant]
     Indication: GOUT
     Route: 048

REACTIONS (1)
  - Chronic myeloid leukaemia [Not Recovered/Not Resolved]
